FAERS Safety Report 9118773 (Version 1)
Quarter: 2013Q1

REPORT INFORMATION
  Report Type: Spontaneous
  Country: IT (occurrence: IT)
  Receive Date: 20130226
  Receipt Date: 20130226
  Transmission Date: 20140127
  Serious: Yes (Other)
  Sender: FDA-Public Use
  Company Number: IT-UCBSA-078852

PATIENT
  Age: 74 Year
  Sex: Female
  Weight: 74 kg

DRUGS (4)
  1. XYZAL [Suspect]
     Indication: HYPERSENSITIVITY
     Route: 048
     Dates: start: 20121227, end: 20121231
  2. OMEPRAZOLE [Concomitant]
  3. BENTELAN [Concomitant]
  4. BISOPROLOL FUMARATE [Concomitant]

REACTIONS (1)
  - Dermatitis bullous [Not Recovered/Not Resolved]
